FAERS Safety Report 11456126 (Version 1)
Quarter: 2015Q3

REPORT INFORMATION
  Report Type: Spontaneous
  Country: US (occurrence: US)
  Receive Date: 20150903
  Receipt Date: 20150903
  Transmission Date: 20151125
  Serious: No
  Sender: FDA-Public Use
  Company Number: US-APOTEX-2015AP009393

PATIENT
  Age: 63 Year
  Sex: Male

DRUGS (6)
  1. BACLOFEN. [Concomitant]
     Active Substance: BACLOFEN
     Indication: CLUSTER HEADACHE
     Dosage: 60 MG, UNK
     Route: 065
  2. GABAPENTIN. [Suspect]
     Active Substance: GABAPENTIN
     Indication: CLUSTER HEADACHE
     Route: 065
  3. CLOMIFENE [Suspect]
     Active Substance: CLOMIPHENE
     Dosage: 50 MG, BID
     Route: 065
  4. CLOMIFENE [Suspect]
     Active Substance: CLOMIPHENE
     Indication: CLUSTER HEADACHE
     Dosage: 50 MG, QD
     Route: 065
  5. VALPROIC ACID ORAL SOLUTION USP [Suspect]
     Active Substance: VALPROIC ACID
     Indication: CLUSTER HEADACHE
     Route: 065
  6. LITHIUM CARBONATE. [Suspect]
     Active Substance: LITHIUM CARBONATE
     Indication: CLUSTER HEADACHE
     Route: 065

REACTIONS (6)
  - Drug ineffective [Unknown]
  - Decreased appetite [Unknown]
  - Mood altered [Unknown]
  - Fatigue [Unknown]
  - Hyperammonaemia [Unknown]
  - Constipation [Unknown]
